FAERS Safety Report 14319074 (Version 17)
Quarter: 2025Q3

REPORT INFORMATION
  Report Type: Spontaneous
  Country: EU (occurrence: EU)
  Receive Date: 20171222
  Receipt Date: 20250917
  Transmission Date: 20251021
  Serious: Yes (Hospitalization, Other)
  Sender: MYLAN
  Company Number: None

PATIENT
  Age: 79 Year
  Sex: Male

DRUGS (96)
  1. CETIRIZINE [Suspect]
     Active Substance: CETIRIZINE HYDROCHLORIDE
     Indication: Product used for unknown indication
     Dosage: 5 MILLIGRAM, QD
     Route: 048
     Dates: start: 20170823, end: 20170823
  2. CETIRIZINE [Suspect]
     Active Substance: CETIRIZINE HYDROCHLORIDE
     Dosage: 5 MILLIGRAM, QD
     Dates: start: 20170823, end: 20170823
  3. CETIRIZINE [Suspect]
     Active Substance: CETIRIZINE HYDROCHLORIDE
     Dosage: 5 MILLIGRAM, QD
     Dates: start: 20170823, end: 20170823
  4. CETIRIZINE [Suspect]
     Active Substance: CETIRIZINE HYDROCHLORIDE
     Dosage: 5 MILLIGRAM, QD
     Route: 048
     Dates: start: 20170823, end: 20170823
  5. CETIRIZINE [Suspect]
     Active Substance: CETIRIZINE HYDROCHLORIDE
     Route: 065
  6. CETIRIZINE [Suspect]
     Active Substance: CETIRIZINE HYDROCHLORIDE
  7. CETIRIZINE [Suspect]
     Active Substance: CETIRIZINE HYDROCHLORIDE
  8. CETIRIZINE [Suspect]
     Active Substance: CETIRIZINE HYDROCHLORIDE
     Route: 065
  9. CLOPIDOGREL [Suspect]
     Active Substance: CLOPIDOGREL BISULFATE
     Indication: Product used for unknown indication
     Dosage: 75 MILLIGRAM, QD
     Route: 048
  10. CLOPIDOGREL [Suspect]
     Active Substance: CLOPIDOGREL BISULFATE
     Dosage: 75 MILLIGRAM, QD
  11. CLOPIDOGREL [Suspect]
     Active Substance: CLOPIDOGREL BISULFATE
     Dosage: 75 MILLIGRAM, QD
  12. CLOPIDOGREL [Suspect]
     Active Substance: CLOPIDOGREL BISULFATE
     Dosage: 75 MILLIGRAM, QD
     Route: 048
  13. CLOPIDOGREL [Suspect]
     Active Substance: CLOPIDOGREL BISULFATE
     Dosage: 75 MILLIGRAM, QD
  14. CLOPIDOGREL [Suspect]
     Active Substance: CLOPIDOGREL BISULFATE
     Dosage: 75 MILLIGRAM, QD
  15. CLOPIDOGREL [Suspect]
     Active Substance: CLOPIDOGREL BISULFATE
     Dosage: 75 MILLIGRAM, QD
     Route: 048
  16. CLOPIDOGREL [Suspect]
     Active Substance: CLOPIDOGREL BISULFATE
     Dosage: 75 MILLIGRAM, QD
     Route: 048
  17. CLOPIDOGREL [Suspect]
     Active Substance: CLOPIDOGREL BISULFATE
     Route: 065
  18. CLOPIDOGREL [Suspect]
     Active Substance: CLOPIDOGREL BISULFATE
     Route: 065
  19. CLOPIDOGREL [Suspect]
     Active Substance: CLOPIDOGREL BISULFATE
  20. CLOPIDOGREL [Suspect]
     Active Substance: CLOPIDOGREL BISULFATE
  21. CLOPIDOGREL [Suspect]
     Active Substance: CLOPIDOGREL BISULFATE
  22. CLOPIDOGREL [Suspect]
     Active Substance: CLOPIDOGREL BISULFATE
  23. CLOPIDOGREL [Suspect]
     Active Substance: CLOPIDOGREL BISULFATE
     Route: 048
  24. CLOPIDOGREL [Suspect]
     Active Substance: CLOPIDOGREL BISULFATE
     Route: 048
  25. RAMIPRIL [Suspect]
     Active Substance: RAMIPRIL
     Indication: Product used for unknown indication
     Dosage: 5 MILLIGRAM, QD, (5 MG, ONCE DAILY (QD))
     Dates: end: 20170823
  26. RAMIPRIL [Suspect]
     Active Substance: RAMIPRIL
     Dosage: 5 MILLIGRAM, QD, (5 MG, ONCE DAILY (QD))
     Dates: end: 20170823
  27. RAMIPRIL [Suspect]
     Active Substance: RAMIPRIL
     Dosage: 5 MILLIGRAM, QD, (5 MG, ONCE DAILY (QD))
     Route: 048
     Dates: end: 20170823
  28. RAMIPRIL [Suspect]
     Active Substance: RAMIPRIL
     Dosage: 5 MILLIGRAM, QD, (5 MG, ONCE DAILY (QD))
     Route: 048
     Dates: end: 20170823
  29. RAMIPRIL [Suspect]
     Active Substance: RAMIPRIL
     Dosage: 2.5 MILLIGRAM, QD, (2.5 MG, ONCE DAILY (QD))
     Dates: end: 20170823
  30. RAMIPRIL [Suspect]
     Active Substance: RAMIPRIL
     Dosage: 2.5 MILLIGRAM, QD, (2.5 MG, ONCE DAILY (QD))
     Dates: end: 20170823
  31. RAMIPRIL [Suspect]
     Active Substance: RAMIPRIL
     Dosage: 2.5 MILLIGRAM, QD, (2.5 MG, ONCE DAILY (QD))
     Route: 048
     Dates: end: 20170823
  32. RAMIPRIL [Suspect]
     Active Substance: RAMIPRIL
     Dosage: 2.5 MILLIGRAM, QD, (2.5 MG, ONCE DAILY (QD))
     Route: 048
     Dates: end: 20170823
  33. HYDROCHLOROTHIAZIDE [Suspect]
     Active Substance: HYDROCHLOROTHIAZIDE
     Indication: Product used for unknown indication
     Dosage: 75 MILLIGRAM, QD, (75 MG, ONCE DAILY (QD))
     Route: 065
     Dates: end: 20170823
  34. HYDROCHLOROTHIAZIDE [Suspect]
     Active Substance: HYDROCHLOROTHIAZIDE
     Dosage: 75 MILLIGRAM, QD, (75 MG, ONCE DAILY (QD))
     Dates: end: 20170823
  35. HYDROCHLOROTHIAZIDE [Suspect]
     Active Substance: HYDROCHLOROTHIAZIDE
     Dosage: 75 MILLIGRAM, QD, (75 MG, ONCE DAILY (QD))
     Dates: end: 20170823
  36. HYDROCHLOROTHIAZIDE [Suspect]
     Active Substance: HYDROCHLOROTHIAZIDE
     Dosage: 75 MILLIGRAM, QD, (75 MG, ONCE DAILY (QD))
     Route: 065
     Dates: end: 20170823
  37. HYDROCHLOROTHIAZIDE [Suspect]
     Active Substance: HYDROCHLOROTHIAZIDE
     Route: 065
  38. HYDROCHLOROTHIAZIDE [Suspect]
     Active Substance: HYDROCHLOROTHIAZIDE
  39. HYDROCHLOROTHIAZIDE [Suspect]
     Active Substance: HYDROCHLOROTHIAZIDE
  40. HYDROCHLOROTHIAZIDE [Suspect]
     Active Substance: HYDROCHLOROTHIAZIDE
     Route: 065
  41. SILODOSIN [Suspect]
     Active Substance: SILODOSIN
     Indication: Product used for unknown indication
     Dosage: 4 MILLIGRAM, QD
     Route: 048
  42. SILODOSIN [Suspect]
     Active Substance: SILODOSIN
     Dosage: 4 MILLIGRAM, QD
  43. SILODOSIN [Suspect]
     Active Substance: SILODOSIN
     Dosage: 4 MILLIGRAM, QD
  44. SILODOSIN [Suspect]
     Active Substance: SILODOSIN
     Dosage: 4 MILLIGRAM, QD
     Route: 048
  45. SILODOSIN [Suspect]
     Active Substance: SILODOSIN
     Route: 048
  46. SILODOSIN [Suspect]
     Active Substance: SILODOSIN
  47. SILODOSIN [Suspect]
     Active Substance: SILODOSIN
  48. SILODOSIN [Suspect]
     Active Substance: SILODOSIN
     Route: 048
  49. VESICARE [Suspect]
     Active Substance: SOLIFENACIN SUCCINATE
     Indication: Product used for unknown indication
     Dosage: 5 MILLIGRAM, QD, (5 MG, ONCE DAILY (QD))
     Route: 048
  50. VESICARE [Suspect]
     Active Substance: SOLIFENACIN SUCCINATE
     Dosage: 5 MILLIGRAM, QD, (5 MG, ONCE DAILY (QD))
  51. VESICARE [Suspect]
     Active Substance: SOLIFENACIN SUCCINATE
     Dosage: 5 MILLIGRAM, QD, (5 MG, ONCE DAILY (QD))
  52. VESICARE [Suspect]
     Active Substance: SOLIFENACIN SUCCINATE
     Dosage: 5 MILLIGRAM, QD, (5 MG, ONCE DAILY (QD))
     Route: 048
  53. VESICARE [Suspect]
     Active Substance: SOLIFENACIN SUCCINATE
     Route: 065
  54. VESICARE [Suspect]
     Active Substance: SOLIFENACIN SUCCINATE
  55. VESICARE [Suspect]
     Active Substance: SOLIFENACIN SUCCINATE
  56. VESICARE [Suspect]
     Active Substance: SOLIFENACIN SUCCINATE
     Route: 065
  57. SODIUM LAURYL SULFATE [Suspect]
     Active Substance: SODIUM LAURYL SULFATE
     Indication: Product used for unknown indication
     Dosage: 4 MILLIGRAM, QD
  58. SODIUM LAURYL SULFATE [Suspect]
     Active Substance: SODIUM LAURYL SULFATE
     Dosage: 4 MILLIGRAM, QD
     Route: 065
  59. SODIUM LAURYL SULFATE [Suspect]
     Active Substance: SODIUM LAURYL SULFATE
     Dosage: 4 MILLIGRAM, QD
     Route: 065
  60. SODIUM LAURYL SULFATE [Suspect]
     Active Substance: SODIUM LAURYL SULFATE
     Dosage: 4 MILLIGRAM, QD
  61. CRESTOR [Concomitant]
     Active Substance: ROSUVASTATIN CALCIUM
     Indication: Product used for unknown indication
  62. CRESTOR [Concomitant]
     Active Substance: ROSUVASTATIN CALCIUM
     Route: 065
  63. CRESTOR [Concomitant]
     Active Substance: ROSUVASTATIN CALCIUM
     Route: 065
  64. CRESTOR [Concomitant]
     Active Substance: ROSUVASTATIN CALCIUM
  65. ACETAMINOPHEN [Concomitant]
     Active Substance: ACETAMINOPHEN
     Indication: Product used for unknown indication
     Dosage: 2.5 MILLIGRAM, QD
     Route: 048
     Dates: start: 20170823
  66. ACETAMINOPHEN [Concomitant]
     Active Substance: ACETAMINOPHEN
     Dosage: 2.5 MILLIGRAM, QD
     Dates: start: 20170823
  67. ACETAMINOPHEN [Concomitant]
     Active Substance: ACETAMINOPHEN
     Dosage: 2.5 MILLIGRAM, QD
     Dates: start: 20170823
  68. ACETAMINOPHEN [Concomitant]
     Active Substance: ACETAMINOPHEN
     Dosage: 2.5 MILLIGRAM, QD
     Route: 048
     Dates: start: 20170823
  69. ACETAMINOPHEN [Concomitant]
     Active Substance: ACETAMINOPHEN
     Route: 065
  70. ACETAMINOPHEN [Concomitant]
     Active Substance: ACETAMINOPHEN
  71. ACETAMINOPHEN [Concomitant]
     Active Substance: ACETAMINOPHEN
  72. ACETAMINOPHEN [Concomitant]
     Active Substance: ACETAMINOPHEN
     Route: 065
  73. ACETAMINOPHEN [Concomitant]
     Active Substance: ACETAMINOPHEN
     Dosage: 2.5 MILLIGRAM, QD
     Route: 048
     Dates: end: 20170823
  74. ACETAMINOPHEN [Concomitant]
     Active Substance: ACETAMINOPHEN
     Dosage: 2.5 MILLIGRAM, QD
     Route: 048
     Dates: end: 20170823
  75. ACETAMINOPHEN [Concomitant]
     Active Substance: ACETAMINOPHEN
     Dosage: 2.5 MILLIGRAM, QD
     Dates: end: 20170823
  76. ACETAMINOPHEN [Concomitant]
     Active Substance: ACETAMINOPHEN
     Dosage: 2.5 MILLIGRAM, QD
     Dates: end: 20170823
  77. Macrogol;Sodium citrate;Sodium lauryl sulfate;Sorbic acid [Concomitant]
     Indication: Product used for unknown indication
  78. Macrogol;Sodium citrate;Sodium lauryl sulfate;Sorbic acid [Concomitant]
  79. Macrogol;Sodium citrate;Sodium lauryl sulfate;Sorbic acid [Concomitant]
     Route: 065
  80. Macrogol;Sodium citrate;Sodium lauryl sulfate;Sorbic acid [Concomitant]
     Route: 065
  81. Macrogol;Sodium citrate;Sodium lauryl sulfate;Sorbic acid [Concomitant]
  82. Macrogol;Sodium citrate;Sodium lauryl sulfate;Sorbic acid [Concomitant]
  83. Macrogol;Sodium citrate;Sodium lauryl sulfate;Sorbic acid [Concomitant]
     Route: 065
  84. Macrogol;Sodium citrate;Sodium lauryl sulfate;Sorbic acid [Concomitant]
     Route: 065
  85. Macrogol;Sodium citrate;Sodium lauryl sulfate;Sorbic acid [Concomitant]
  86. Macrogol;Sodium citrate;Sodium lauryl sulfate;Sorbic acid [Concomitant]
     Route: 065
  87. Macrogol;Sodium citrate;Sodium lauryl sulfate;Sorbic acid [Concomitant]
  88. Macrogol;Sodium citrate;Sodium lauryl sulfate;Sorbic acid [Concomitant]
     Route: 065
  89. Sorbic acid potassium [Concomitant]
     Indication: Product used for unknown indication
     Dosage: 5 MILLIGRAM, QD
  90. Sorbic acid potassium [Concomitant]
     Dosage: 5 MILLIGRAM, QD
     Route: 065
  91. Sorbic acid potassium [Concomitant]
     Dosage: 5 MILLIGRAM, QD
     Route: 065
  92. Sorbic acid potassium [Concomitant]
     Dosage: 5 MILLIGRAM, QD
  93. SODIUM CITRATE [Concomitant]
     Active Substance: SODIUM CITRATE
     Indication: Product used for unknown indication
  94. SODIUM CITRATE [Concomitant]
     Active Substance: SODIUM CITRATE
     Route: 065
  95. SODIUM CITRATE [Concomitant]
     Active Substance: SODIUM CITRATE
     Route: 065
  96. SODIUM CITRATE [Concomitant]
     Active Substance: SODIUM CITRATE

REACTIONS (2)
  - Acute kidney injury [Unknown]
  - Hyponatraemia [Unknown]

NARRATIVE: CASE EVENT DATE: 20170823
